FAERS Safety Report 10689985 (Version 2)
Quarter: 2015Q1

REPORT INFORMATION
  Report Type: Report from Study
  Country: US (occurrence: US)
  Receive Date: 20150105
  Receipt Date: 20150105
  Transmission Date: 20150720
  Serious: No
  Sender: FDA-Public Use
  Company Number: US-JNJFOC-20140302024

PATIENT
  Age: 69 Year
  Sex: Female

DRUGS (1)
  1. REMICADE [Suspect]
     Active Substance: INFLIXIMAB
     Indication: PSORIASIS
     Route: 042
     Dates: start: 20120820, end: 20121226

REACTIONS (4)
  - Polyneuropathy [Unknown]
  - Squamous cell carcinoma [Unknown]
  - Peroneal nerve palsy [Unknown]
  - Anaemia [Unknown]
